FAERS Safety Report 8987156 (Version 1)
Quarter: 2012Q4

REPORT INFORMATION
  Report Type: 
  Country: CH (occurrence: US)
  Receive Date: 20121226
  Receipt Date: 20121226
  Transmission Date: 20130627
  Serious: Yes (Other)
  Sender: FDA-Public Use
  Company Number: US-WATSON-2012-22317

PATIENT
  Age: 56 Year
  Sex: Female

DRUGS (2)
  1. TRELSTAR (WATSON LABORATORIES) [Suspect]
     Indication: BREAST CANCER
     Dosage: 3.75 mg once a month
     Route: 030
     Dates: start: 20050811
  2. EXEMESTANE [Suspect]
     Indication: BREAST CANCER
     Dosage: 25 mg, once per month
     Route: 065
     Dates: start: 20050922

REACTIONS (1)
  - Fracture [Recovered/Resolved]
